FAERS Safety Report 8804495 (Version 1)
Quarter: 2012Q4

REPORT INFORMATION
  Report Type: 
  Country: BR (occurrence: BR)
  Receive Date: 20120924
  Receipt Date: 20120924
  Transmission Date: 20130627
  Serious: Yes (Death, Hospitalization, Other)
  Sender: FDA-Public Use
  Company Number: BR-PFIZER INC-2012209743

PATIENT
  Age: 72 Year
  Sex: Male

DRUGS (2)
  1. SUTENT [Suspect]
     Indication: GASTROINTESTINAL STROMAL CANCER
     Dosage: 50 mg, 1x/day, cyclic (4x2)
     Route: 048
     Dates: start: 20120810
  2. SUTENT [Suspect]
     Indication: GASTROINTESTINAL CARCINOMA

REACTIONS (4)
  - Death [Fatal]
  - Haemorrhage [Unknown]
  - Haematemesis [Unknown]
  - Asthenia [Unknown]
